FAERS Safety Report 7822680-0 (Version None)
Quarter: 2011Q4

REPORT INFORMATION
  Report Type: 
  Country: None (occurrence: None)
  Receive Date: 20111018
  Receipt Date: 20111005
  Transmission Date: 20120403
  Serious: Yes (Other)
  Sender: FDA-Public Use
  Company Number: CA-ROCHE-1004253

PATIENT
  Sex: Female

DRUGS (16)
  1. MONOCOR [Concomitant]
  2. VENTOLIN [Concomitant]
  3. XOLAIR [Suspect]
     Indication: CHRONIC OBSTRUCTIVE PULMONARY DISEASE
  4. GLUCOPHAGE [Concomitant]
  5. SYNTHROID [Concomitant]
  6. DIAMICRON [Concomitant]
  7. SYMBICORT [Concomitant]
  8. SPIRIVA [Concomitant]
     Dosage: ^BOEHRINGER INGELHEIM^
  9. NEURONTIN [Concomitant]
  10. ATIVAN [Concomitant]
  11. CRESTOR [Concomitant]
  12. XOLAIR [Suspect]
     Indication: ASTHMA
     Route: 058
     Dates: start: 20110907
  13. WELLBUTRIN [Concomitant]
  14. FOSAMAX [Concomitant]
  15. ELAVIL [Concomitant]
  16. ACTOS [Concomitant]

REACTIONS (2)
  - BLOOD PRESSURE FLUCTUATION [None]
  - HEART RATE IRREGULAR [None]
